FAERS Safety Report 10711999 (Version 1)
Quarter: 2015Q1

REPORT INFORMATION
  Report Type: Spontaneous
  Country: US (occurrence: US)
  Receive Date: 20150114
  Receipt Date: 20150114
  Transmission Date: 20150721
  Serious: No
  Sender: FDA-Public Use
  Company Number: US-ALLERGAN-1418391US

PATIENT
  Sex: Female

DRUGS (1)
  1. ACZONE [Suspect]
     Active Substance: DAPSONE
     Indication: ACNE
     Dosage: 1 APPLICATION TWICE A DAY
     Route: 061
     Dates: start: 201405

REACTIONS (2)
  - Rash [Recovered/Resolved]
  - Dry skin [Recovered/Resolved]
